FAERS Safety Report 15431744 (Version 1)
Quarter: 2018Q3

REPORT INFORMATION
  Report Type: Report from Study
  Country: US (occurrence: US)
  Receive Date: 20180926
  Receipt Date: 20180926
  Transmission Date: 20181010
  Serious: Yes (Hospitalization, Other)
  Sender: FDA-Public Use
  Company Number: US-SAKK-2018SA242604AA

PATIENT
  Age: 73 Year
  Sex: Female

DRUGS (4)
  1. INSULIN GLARGINE [Suspect]
     Active Substance: INSULIN GLARGINE
     Indication: DIABETES MELLITUS
     Dosage: 22 U, HS
     Route: 058
  2. INSULIN GLARGINE [Suspect]
     Active Substance: INSULIN GLARGINE
     Indication: DIABETES MELLITUS
     Dosage: 25 U, QD
     Route: 058
     Dates: start: 2017
  3. NOVOLOG [Concomitant]
     Active Substance: INSULIN ASPART
     Dosage: 18 U, UNK (BEFORE MEAL)
  4. INSULIN GLULISINE [Suspect]
     Active Substance: INSULIN GLULISINE
     Indication: DIABETES MELLITUS
     Dosage: 8 U, UNK (FIVE MINUTES BEFORE EVERY MEAL)
     Route: 058

REACTIONS (10)
  - Loss of consciousness [Recovered/Resolved]
  - Dizziness [Recovered/Resolved]
  - Cataract [Recovered/Resolved]
  - Syncope [Recovered/Resolved]
  - Malaise [Not Recovered/Not Resolved]
  - Diabetic retinopathy [Not Recovered/Not Resolved]
  - Blindness unilateral [Not Recovered/Not Resolved]
  - Retinal haemorrhage [Recovered/Resolved]
  - Bradycardia [Recovered/Resolved]
  - Inability to afford medication [Not Recovered/Not Resolved]

NARRATIVE: CASE EVENT DATE: 2010
